FAERS Safety Report 5273995-4 (Version None)
Quarter: 2007Q1

REPORT INFORMATION
  Report Type: 
  Country: None (occurrence: None)
  Receive Date: 20070323
  Receipt Date: 20070316
  Transmission Date: 20070707
  Serious: Yes (Other)
  Sender: FDA-Public Use
  Company Number: JP-JPN-A200700805

PATIENT
  Age: 7 Year
  Sex: Female

DRUGS (7)
  1. RELENZA [Suspect]
     Indication: INFLUENZA
     Dosage: 10MG TWICE PER DAY
     Route: 055
     Dates: start: 20070227, end: 20070303
  2. JAPANESE MEDICATION [Concomitant]
     Indication: INFLUENZA
     Route: 048
     Dates: start: 20070227
  3. TELGIN G [Concomitant]
     Indication: BRONCHITIS
     Route: 048
     Dates: start: 20070227
  4. NEUZYM [Concomitant]
     Indication: BRONCHITIS
     Route: 048
     Dates: start: 20070227
  5. MEPTIN [Concomitant]
     Indication: BRONCHITIS
     Route: 048
     Dates: start: 20070227
  6. KETOFEN [Concomitant]
     Indication: BRONCHITIS
     Route: 048
     Dates: start: 20070227
  7. CEFROXADINE [Concomitant]
     Indication: BRONCHITIS
     Route: 048
     Dates: start: 20070227

REACTIONS (2)
  - DELIRIUM [None]
  - FEAR [None]
